FAERS Safety Report 17783536 (Version 3)
Quarter: 2020Q3

REPORT INFORMATION
  Report Type: Report from Study
  Country: US (occurrence: US)
  Receive Date: 20200514
  Receipt Date: 20200806
  Transmission Date: 20201102
  Serious: Yes (Hospitalization)
  Sender: FDA-Public Use
  Company Number: US-KYOWAKIRIN-2020BKK007570

PATIENT

DRUGS (41)
  1. NUPLAZID [Suspect]
     Active Substance: PIMAVANSERIN TARTRATE
     Dosage: ONE CAPSULE, ONCE DAILY AT 6 A.M.
     Route: 048
     Dates: start: 2020
  2. ZYPREXA [Concomitant]
     Active Substance: OLANZAPINE
     Indication: PRODUCT USED FOR UNKNOWN INDICATION
     Dosage: 1.25 MG AT 6 A.M. AND 2.5 MG AT 10 P.M.
     Route: 048
  3. PROTONIX [Concomitant]
     Active Substance: PANTOPRAZOLE SODIUM
     Indication: GASTROOESOPHAGEAL REFLUX DISEASE
     Dosage: 40 MG, DAILY
     Route: 048
  4. GLUTOSE [Concomitant]
     Active Substance: DEXTROSE
     Indication: PRODUCT USED FOR UNKNOWN INDICATION
     Dosage: 15 G, PRN
     Route: 048
  5. SODIUM CHLORIDE. [Concomitant]
     Active Substance: SODIUM CHLORIDE
     Dosage: FLUSH 3 ML, Q12H SCH
     Route: 042
  6. NUPLAZID [Suspect]
     Active Substance: PIMAVANSERIN TARTRATE
     Indication: PARKINSON^S DISEASE
     Dosage: 34 MG, DAILY, AT 16.00
     Route: 048
     Dates: start: 20200417, end: 2020
  7. RYTARY [Concomitant]
     Active Substance: CARBIDOPA\LEVODOPA
     Dosage: 3 CAPSULES AT 7 A.M., 2 CAPSULES AT 10 A.M., 2 CAPSULES AT 1 P.M., 2 CAPSULES AT 4 P.M., 1 CAPSULE A
     Route: 048
     Dates: end: 20200524
  8. ZYPREXA [Concomitant]
     Active Substance: OLANZAPINE
     Dosage: ONE TABLET, AS NEEDED
     Route: 048
  9. KLONOPIN [Concomitant]
     Active Substance: CLONAZEPAM
     Dosage: 1 DOSAGE FORM AT 10 P.M.
     Route: 048
     Dates: start: 2020
  10. SODIUM CHLORIDE. [Concomitant]
     Active Substance: SODIUM CHLORIDE
     Indication: PRODUCT USED FOR UNKNOWN INDICATION
     Dosage: 20 ML/HOUR CONTINUOUSLY AS NEEDED.
     Route: 042
  11. RYTARY [Concomitant]
     Active Substance: CARBIDOPA\LEVODOPA
     Dosage: 3 CAPSULES AT 6 A.M., 2 CAPSULES AT 9 A.M., 2 CAPSULES AT 12 P.M., 2 CAPSULES AT 3 P.M., 1 CAPSULE A
     Route: 048
     Dates: start: 20200425, end: 20200505
  12. SINEMET [Concomitant]
     Active Substance: CARBIDOPA\LEVODOPA
     Dosage: 2 TABLETS AT 6 A.M., 2 TABLETS AT 9 A.M., 2 TABLETS AT 12 P.M., 2 TABLETS AT 3 P.M., 1 TABLET AT 6 P
     Route: 048
     Dates: start: 20200425, end: 20200505
  13. ZYPREXA [Concomitant]
     Active Substance: OLANZAPINE
     Dosage: 1.25 MG AT 6 A.M. AND 2.5 MG AT 9 P.M.,
     Route: 048
     Dates: start: 20200425
  14. ZYPREXA [Concomitant]
     Active Substance: OLANZAPINE
     Indication: PRODUCT USED FOR UNKNOWN INDICATION
     Dosage: 2.5 MG, AT 22:00
     Route: 048
  15. ZYPREXA [Concomitant]
     Active Substance: OLANZAPINE
     Dosage: HALF A DOSAGE FORMS AT 7 A.M. AND ONE DOSAGE FORMS AT 10 P.M.
     Route: 048
  16. ZYPREXA [Concomitant]
     Active Substance: OLANZAPINE
     Dosage: 1/2 (HALF) A TABLET, ONCE DAILY AT 6 A.M AND ONE TABLET, ONCE DAILY AT BEDTIME
     Route: 048
  17. KLONOPIN [Concomitant]
     Active Substance: CLONAZEPAM
     Indication: PRODUCT USED FOR UNKNOWN INDICATION
     Dosage: 0.5 MG, AT BEDTIME
     Route: 048
     Dates: start: 20200331, end: 20200622
  18. CLOZARIL [Concomitant]
     Active Substance: CLOZAPINE
     Dosage: HALF TABLET (12.5 MG)AT 6 A.M., AND HALF TABLET (12.5 MG) AT 10 P.M.
     Route: 048
     Dates: start: 20200506, end: 20200610
  19. DEXTROSE. [Concomitant]
     Active Substance: DEXTROSE
     Indication: PRODUCT USED FOR UNKNOWN INDICATION
     Dosage: 100 ML/HOUR, CONTINUOUSLY AS NEEDED
     Route: 042
  20. RYTARY [Concomitant]
     Active Substance: CARBIDOPA\LEVODOPA
     Indication: PARKINSON^S DISEASE
     Dosage: 3 CAPSULES AT 7 A.M., 2 CAPSULES AT 10 A.M., 2 CAPSULES AT 1 P.M., 2 CAPSULES AT 4 P.M., 1 CAPSULE A
     Route: 048
  21. RYTARY [Concomitant]
     Active Substance: CARBIDOPA\LEVODOPA
     Dosage: 2 CAPSULES AT 6 A.M., 2 CAPSULES AT 10 A.M., 2 CAPSULES AT 2 P.M., 1 CAPSULE AT 6 P.M. AND 2 CAPSULE
     Route: 048
     Dates: start: 20200506, end: 20200619
  22. CARBIDOPA;LEVODOPA [Concomitant]
     Active Substance: CARBIDOPA\LEVODOPA
     Dosage: 0.5 TO 1 TABLET THREE TIMES A DAY AS NEEDED
     Route: 065
     Dates: start: 2020
  23. LOVENOX [Concomitant]
     Active Substance: ENOXAPARIN SODIUM
     Indication: PRODUCT USED FOR UNKNOWN INDICATION
     Dosage: 0.4 ML (40 MG TOTAL), DAILY
     Route: 058
     Dates: start: 20200507, end: 202005
  24. ZOLOFT [Concomitant]
     Active Substance: SERTRALINE HYDROCHLORIDE
     Indication: DEPRESSION
     Dosage: ONE TABLET (25 MG TOTAL) DAILY, AT 6 A.M.
     Route: 048
     Dates: start: 20190828
  25. DEXTROSE. [Concomitant]
     Active Substance: DEXTROSE
     Indication: PRODUCT USED FOR UNKNOWN INDICATION
     Dosage: 50 % IN WATER, 50 % SOLUTION IN 25 ML, AT THE DOSE OF 25 ML, AS NEEDED
     Route: 042
  26. GLUCAGON HCL [Concomitant]
     Indication: PRODUCT USED FOR UNKNOWN INDICATION
     Dosage: 1 MG, PRN
     Route: 030
  27. NOURIANZ [Suspect]
     Active Substance: ISTRADEFYLLINE
     Indication: PARKINSON^S DISEASE
     Dosage: 20 MG, DAILY
     Route: 048
     Dates: start: 20200425, end: 2020
  28. SINEMET [Concomitant]
     Active Substance: CARBIDOPA\LEVODOPA
     Indication: PARKINSON^S DISEASE
     Dosage: 2 TABLETS AT 7 A.M., 2 TABLETS AT 10 A.M., 2 TABLETS AT 1 P.M., 2 TABLETS AT 4 P.M., 1 TABLET AT 7 P
     Route: 048
  29. CARBIDOPA;LEVODOPA [Concomitant]
     Active Substance: CARBIDOPA\LEVODOPA
     Dosage: 2 CAPSULES AT 6 A.M., 1 CAPSULES AT 10 A.M., 1 CAPSULES AT 2 P.M, 1 CAPSULES AT 6 P.M AND 1 CAPSULE
     Route: 065
     Dates: start: 2020
  30. SODIUM CHLORIDE. [Concomitant]
     Active Substance: SODIUM CHLORIDE
     Dosage: FLUSH BAG 3 ML AS NEEDED
     Route: 042
  31. ZYPREXA [Concomitant]
     Active Substance: OLANZAPINE
     Dosage: 1/2 TABLET QD
     Route: 048
  32. CLOZARIL [Concomitant]
     Active Substance: CLOZAPINE
     Indication: HALLUCINATION
     Dosage: 12.5MG/12.5MG/25 MG
     Route: 048
     Dates: start: 2020
  33. SENOKOT?S [Concomitant]
     Active Substance: DOCUSATE SODIUM\SENNOSIDES
     Indication: CONSTIPATION
     Dosage: 1 TABET, DAILY AS NEEDED
     Route: 048
     Dates: start: 20190828
  34. SODIUM CHLORIDE. [Concomitant]
     Active Substance: SODIUM CHLORIDE
     Indication: PRODUCT USED FOR UNKNOWN INDICATION
     Dosage: FLUSH 3 ML AS NEEDED
     Route: 042
  35. NOURIANZ [Suspect]
     Active Substance: ISTRADEFYLLINE
     Dosage: TWO TABLETS, ONCE DAILY AT 6 A.M.
     Route: 048
     Dates: start: 2020
  36. RYTARY [Concomitant]
     Active Substance: CARBIDOPA\LEVODOPA
     Dosage: 2 CAPSULES AT 6 A.M., 2 CAPSULES AT 10 A.M., 2 CAPSULES AT 2 P.M, 2 CAPSULES AT 6 P.M, 2 CAPSULES AT
     Route: 048
     Dates: start: 2020
  37. SINEMET [Concomitant]
     Active Substance: CARBIDOPA\LEVODOPA
     Dosage: 2 TABLETS AT 6 A.M., 1 TABLET AT 10 A.M., 1 TABLET AT 2 P.M., 1 TABLET AT 6 P.M., AND 1 TABLET AT 10
     Route: 048
     Dates: start: 20200506, end: 20200615
  38. CARBIDOPA;LEVODOPA [Concomitant]
     Active Substance: CARBIDOPA\LEVODOPA
     Indication: PARKINSON^S DISEASE
     Dosage: 2 DOSAGE FORMS AT 7 A.M., 2 DOSAGE FORMS AT 10 A.M., 2 AT 1 P.M., 2 DOSAGE FORMS AT 4 P.M., 1 DOSAGE
     Route: 065
  39. CLONAZEPAM. [Concomitant]
     Active Substance: CLONAZEPAM
     Indication: PRODUCT USED FOR UNKNOWN INDICATION
     Dosage: ONE TABLET, ONCE DAILY AT 10 P.M.
     Route: 048
     Dates: start: 2020
  40. SINEMET [Concomitant]
     Active Substance: CARBIDOPA\LEVODOPA
     Dosage: ONE TABLET BY MOUTH THREE TIMES A DAY AS NEEDED
     Route: 048
     Dates: start: 20200506
  41. HYTONE [Concomitant]
     Active Substance: HYDROCORTISONE
     Indication: RASH MACULO-PAPULAR
     Dosage: 1 APPLICATION, TWO TIMES DAILY
     Route: 061
     Dates: start: 2020, end: 2020

REACTIONS (6)
  - Oxygen saturation decreased [Recovering/Resolving]
  - Drug ineffective [Not Recovered/Not Resolved]
  - Parkinson^s disease [Recovering/Resolving]
  - Asthenia [Not Recovered/Not Resolved]
  - Hypoxia [Unknown]
  - Balance disorder [Unknown]

NARRATIVE: CASE EVENT DATE: 2020
